FAERS Safety Report 7710187-0 (Version None)
Quarter: 2011Q3

REPORT INFORMATION
  Report Type: 
  Country: None (occurrence: None)
  Receive Date: 20110825
  Receipt Date: 20110627
  Transmission Date: 20111222
  Serious: No
  Sender: FDA-Public Use
  Company Number: US-MYLANLABS-2011S1013472

PATIENT
  Age: 63 Year
  Sex: Male
  Weight: 92.99 kg

DRUGS (3)
  1. METOPROLOL [Concomitant]
     Indication: BLOOD PRESSURE INCREASED
     Dates: start: 20060101
  2. LEVETIRACETAM [Suspect]
     Indication: CONVULSION
     Route: 048
     Dates: start: 20110401, end: 20110625
  3. ACETYLSALICYLIC ACID SRT [Concomitant]
     Dates: start: 20110101

REACTIONS (4)
  - MUSCLE TWITCHING [None]
  - BLEPHAROSPASM [None]
  - FATIGUE [None]
  - ANXIETY [None]
